FAERS Safety Report 5239351-X (Version None)
Quarter: 2007Q1

REPORT INFORMATION
  Report Type: 
  Country: None (occurrence: None)
  Receive Date: 20070216
  Receipt Date: 20070207
  Transmission Date: 20070707
  Serious: Yes (Disabling)
  Sender: FDA-Public Use
  Company Number: SE-JNJFOC-20070202435

PATIENT
  Age: 55 Year
  Sex: Female

DRUGS (9)
  1. REMICADE [Suspect]
     Indication: RHEUMATOID ARTHRITIS
     Route: 042
  2. METHOTREXATE [Concomitant]
     Route: 065
  3. FOLACIN [Concomitant]
     Route: 065
  4. LIPITOR [Concomitant]
     Route: 065
  5. PREDNISOLONE [Concomitant]
     Route: 065
  6. SOBRIL [Concomitant]
     Route: 065
  7. ZESTRIL [Concomitant]
     Route: 065
  8. LASIX [Concomitant]
     Route: 065
  9. SOMADRIL [Concomitant]
     Route: 065

REACTIONS (2)
  - BALANCE DISORDER [None]
  - NERVOUS SYSTEM DISORDER [None]
